FAERS Safety Report 20013474 (Version 2)
Quarter: 2022Q1

REPORT INFORMATION
  Report Type: Report from Study
  Country: BR (occurrence: BR)
  Receive Date: 20211029
  Receipt Date: 20220124
  Transmission Date: 20220423
  Serious: Yes (Hospitalization)
  Sender: FDA-Public Use
  Company Number: BR-NOVARTISPH-NVSC2020BR268046

PATIENT
  Age: 47 Year
  Sex: Female
  Weight: 89 kg

DRUGS (11)
  1. RITUXIMAB [Suspect]
     Active Substance: RITUXIMAB
     Indication: Rheumatoid arthritis
     Dosage: 2 DF, EVERY 6 MONTHS (ENDOVENOUS)
     Route: 042
  2. GABAPENTIN [Suspect]
     Active Substance: GABAPENTIN
     Indication: Insomnia
     Dosage: 300 MG, Q12H
     Route: 048
  3. LOSARTAN [Suspect]
     Active Substance: LOSARTAN
     Indication: Hypertension
     Dosage: 1 DF, Q12H
     Route: 048
  4. RATINOL [Concomitant]
     Indication: Systemic lupus erythematosus
     Dosage: UNK
     Route: 065
  5. PREDNISONE [Concomitant]
     Active Substance: PREDNISONE
     Indication: Systemic lupus erythematosus
     Dosage: 1 DF, QD
     Route: 048
  6. DIAZEPINES, OXAZEPINES, THIAZEPINES AND OXEPI [Concomitant]
     Indication: Bone pain
     Dosage: 3 DF, QD
     Route: 048
  7. CHLOROQUINE [Concomitant]
     Active Substance: CHLOROQUINE
     Indication: Systemic lupus erythematosus
     Dosage: 2 DF, QD
     Route: 048
  8. HYDROCHLOROTHIAZIDE [Concomitant]
     Active Substance: HYDROCHLOROTHIAZIDE
     Indication: Hypertension
     Dosage: 1 DF, QD
     Route: 048
  9. OMEPRAZOLE [Concomitant]
     Active Substance: OMEPRAZOLE
     Indication: Abdominal pain upper
     Dosage: 20 MG, QD
     Route: 065
  10. ASPIRIN [Concomitant]
     Active Substance: ASPIRIN
     Indication: Thrombosis
     Dosage: 1 DF, QD
     Route: 048
  11. LACRISIN [Concomitant]
     Indication: Blindness
     Dosage: 2 DROPS IN BOTH EYES, TID
     Route: 065

REACTIONS (13)
  - COVID-19 [Recovered/Resolved with Sequelae]
  - Sluggishness [Unknown]
  - Headache [Recovered/Resolved with Sequelae]
  - Pyrexia [Recovered/Resolved with Sequelae]
  - Cough [Recovered/Resolved with Sequelae]
  - Malaise [Recovered/Resolved with Sequelae]
  - Lung disorder [Recovered/Resolved with Sequelae]
  - Drug intolerance [Unknown]
  - Head discomfort [Recovered/Resolved]
  - Feeling abnormal [Recovered/Resolved]
  - Dizziness [Recovered/Resolved]
  - Visual impairment [Unknown]
  - Headache [Recovered/Resolved]

NARRATIVE: CASE EVENT DATE: 20200929
